FAERS Safety Report 13842066 (Version 7)
Quarter: 2018Q2

REPORT INFORMATION
  Report Type: Report from Study
  Country: US (occurrence: US)
  Receive Date: 20170807
  Receipt Date: 20180517
  Transmission Date: 20180711
  Serious: Yes (Hospitalization)
  Sender: FDA-Public Use
  Company Number: US-BRISTOL-MYERS SQUIBB COMPANY-BMS-2017-068866

PATIENT
  Age: 70 Year
  Sex: Female
  Weight: 42 kg

DRUGS (10)
  1. IBUPROFEN. [Concomitant]
     Active Substance: IBUPROFEN
     Indication: MUSCULOSKELETAL PAIN
     Dosage: 200 MG, UNK
     Route: 048
     Dates: start: 20170718, end: 20171019
  2. CYANOCOBALAMIN. [Concomitant]
     Active Substance: CYANOCOBALAMIN
     Indication: MALNUTRITION
     Dosage: 1 MG, UNK
     Route: 048
     Dates: start: 20170621
  3. PREDNISONE. [Concomitant]
     Active Substance: PREDNISONE
     Indication: HYPOPHYSITIS
     Dosage: 5 MG, UNK
     Route: 048
     Dates: start: 20170818, end: 20170920
  4. IPILIMUMAB [Suspect]
     Active Substance: IPILIMUMAB
     Indication: METASTATIC MALIGNANT MELANOMA
     Dosage: UNK (TOTAL DOSE 530)
     Route: 065
     Dates: start: 20170508
  5. FERROUS SULFATE. [Concomitant]
     Active Substance: FERROUS SULFATE
     Indication: ANAEMIA
     Dosage: 1 TAB, UNK
     Route: 048
     Dates: start: 20170621
  6. OMEPRAZOLE. [Concomitant]
     Active Substance: OMEPRAZOLE
     Indication: PROPHYLAXIS
     Dosage: 20 UNK, UNK
     Route: 048
     Dates: start: 20150123
  7. OMEPRAZOLE. [Concomitant]
     Active Substance: OMEPRAZOLE
     Indication: PRODUCT USED FOR UNKNOWN INDICATION
     Dosage: 40 MG, UNK
     Route: 048
     Dates: start: 20170614
  8. LEVOTHYROXINE. [Concomitant]
     Active Substance: LEVOTHYROXINE
     Indication: THYROIDITIS
     Dosage: 75 ?G, UNK
     Route: 048
     Dates: start: 20170913, end: 20170927
  9. NIVOLUMAB [Suspect]
     Active Substance: NIVOLUMAB
     Indication: METASTATIC MALIGNANT MELANOMA
     Dosage: UNK (TOTAL DOSE 562)
     Route: 065
     Dates: start: 20170508
  10. POTASSIUM CHLORIDE. [Concomitant]
     Active Substance: POTASSIUM CHLORIDE
     Indication: HYPOKALAEMIA
     Dosage: 40 MEQ, UNK
     Route: 048
     Dates: start: 20170804

REACTIONS (2)
  - Fatigue [Recovered/Resolved]
  - Hyponatraemia [Recovered/Resolved]

NARRATIVE: CASE EVENT DATE: 20170727
